FAERS Safety Report 11272712 (Version 1)
Quarter: 2015Q3

REPORT INFORMATION
  Report Type: Spontaneous
  Country: US (occurrence: None)
  Receive Date: 20150714
  Receipt Date: 20150714
  Transmission Date: 20151125
  Serious: Yes (Life-Threatening)
  Sender: FDA-Public Use
  Company Number: None

PATIENT
  Age: 56 Year
  Sex: Male
  Weight: 95.26 kg

DRUGS (13)
  1. LOW-DOSE MALTREXONE [Concomitant]
  2. TEMAZEPAM. [Concomitant]
     Active Substance: TEMAZEPAM
  3. ASPIRIN. [Concomitant]
     Active Substance: ASPIRIN
  4. BUPOPRION HYDROCHLORIDE [Concomitant]
  5. ADVIL [Concomitant]
     Active Substance: IBUPROFEN
  6. DEXTRO-AMPHETAMINE [Concomitant]
  7. DIAZEPAM. [Concomitant]
     Active Substance: DIAZEPAM
  8. BACLOFEN. [Concomitant]
     Active Substance: BACLOFEN
  9. LAMOTRIGINE. [Concomitant]
     Active Substance: LAMOTRIGINE
  10. LAMOTRIGINE 150 MG TEVA [Suspect]
     Active Substance: LAMOTRIGINE
     Indication: MAJOR DEPRESSION
     Dosage: 1 PILL
     Route: 048
  11. CYCLOBENZEPRINE [Concomitant]
  12. ZETIA [Concomitant]
     Active Substance: EZETIMIBE
  13. MELATONIN [Concomitant]
     Active Substance: MELATONIN

REACTIONS (3)
  - Suicidal ideation [None]
  - Anhedonia [None]
  - Product substitution issue [None]

NARRATIVE: CASE EVENT DATE: 20150630
